FAERS Safety Report 6235328-6 (Version None)
Quarter: 2009Q2

REPORT INFORMATION
  Report Type: 
  Country: None (occurrence: None)
  Receive Date: 20090615
  Receipt Date: 20090602
  Transmission Date: 20091009
  Serious: Yes (Life-Threatening, Hospitalization)
  Sender: FDA-Public Use
  Company Number: 2009-01330

PATIENT
  Age: 64 Year
  Sex: Female
  Weight: 43 kg

DRUGS (13)
  1. VELCADE [Suspect]
     Indication: MULTIPLE MYELOMA
     Dosage: 1.7 MG, INTRAVENOUS; 1.7 MG, INTRAVENOUS
     Route: 042
     Dates: start: 20090116, end: 20090126
  2. VELCADE [Suspect]
     Indication: MULTIPLE MYELOMA
     Dosage: 1.7 MG, INTRAVENOUS; 1.7 MG, INTRAVENOUS
     Route: 042
     Dates: start: 20090313, end: 20090320
  3. PREDNISOLONE [Concomitant]
  4. CALBLOCK (AZELNIDIPINE) [Concomitant]
  5. DIOVAN [Concomitant]
  6. OMEPRAZOLE [Concomitant]
  7. MANIDIPINE (MANIDIPINE) [Concomitant]
  8. ALENDRONATE SODIUM (BONALON) (ALENDRONATE SODIUM) [Concomitant]
  9. FENTANYL (DUROTEP MT) (FENTANYL) [Concomitant]
  10. RED BLOOD CELLS [Concomitant]
  11. BACTRIM [Concomitant]
  12. ASPIRIN [Concomitant]
  13. DIFLUCAN [Concomitant]

REACTIONS (9)
  - ACTIVITIES OF DAILY LIVING IMPAIRED [None]
  - AGNOSIA [None]
  - AMINO ACID METABOLISM DISORDER [None]
  - COMA [None]
  - HAEMODIALYSIS [None]
  - HERPES SIMPLEX [None]
  - MELAENA [None]
  - PLATELET COUNT DECREASED [None]
  - RECTAL ULCER [None]
